FAERS Safety Report 23024455 (Version 1)
Quarter: 2023Q4

REPORT INFORMATION
  Report Type: Spontaneous
  Country: US (occurrence: US)
  Receive Date: 20231004
  Receipt Date: 20231004
  Transmission Date: 20240110
  Serious: No
  Sender: FDA-Public Use
  Company Number: US-SA-SAC20230928000921

PATIENT
  Age: 4 Year
  Sex: Female

DRUGS (1)
  1. DUPIXENT [Suspect]
     Active Substance: DUPILUMAB
     Indication: Dermatitis atopic
     Dosage: 300 MG, QM
     Route: 058
     Dates: start: 202307, end: 2023

REACTIONS (3)
  - Illness [Unknown]
  - Eczema [Unknown]
  - Rash erythematous [Unknown]

NARRATIVE: CASE EVENT DATE: 20230101
